FAERS Safety Report 5176613-9 (Version None)
Quarter: 2006Q4

REPORT INFORMATION
  Report Type: 
  Country: None (occurrence: None)
  Receive Date: 20061207
  Receipt Date: 20061124
  Transmission Date: 20070319
  Serious: Yes (Hospitalization)
  Sender: FDA-Public Use
  Company Number: 2006127418

PATIENT
  Age: 40 Year
  Sex: Female
  Weight: 46 kg

DRUGS (4)
  1. CIPROFLOXACIN [Suspect]
     Indication: TYPHOID FEVER
     Dosage: ORAL
     Route: 048
     Dates: start: 20060819, end: 20060827
  2. QUININE SULFATE [Suspect]
     Indication: TYPHOID FEVER
     Dosage: ORAL
     Route: 048
     Dates: start: 20060819, end: 20060827
  3. ATORVASTATIN CALCIUM [Suspect]
     Dosage: ORAL
     Route: 048
     Dates: start: 20040615, end: 20060823
  4. ALL OTHER THERAPEUTIC PRODUCTS [Concomitant]

REACTIONS (9)
  - AGITATION [None]
  - C-REACTIVE PROTEIN INCREASED [None]
  - CHILLS [None]
  - CYTOLYTIC HEPATITIS [None]
  - DISORIENTATION [None]
  - HALLUCINATION [None]
  - HEPATITIS CHOLESTATIC [None]
  - TYPHOID FEVER [None]
  - VIRAL INFECTION [None]
